FAERS Safety Report 20846794 (Version 1)
Quarter: 2022Q2

REPORT INFORMATION
  Report Type: Spontaneous
  Country: US (occurrence: US)
  Receive Date: 20220519
  Receipt Date: 20220519
  Transmission Date: 20220721
  Serious: No
  Sender: FDA-Public Use
  Company Number: US-JNJFOC-20220527774

PATIENT
  Sex: Male

DRUGS (1)
  1. REMICADE [Suspect]
     Active Substance: INFLIXIMAB
     Indication: Product used for unknown indication
     Route: 042

REACTIONS (6)
  - Back pain [Unknown]
  - Urticaria [Unknown]
  - Injection site pain [Unknown]
  - Injection site haemorrhage [Unknown]
  - Injection site injury [Unknown]
  - Drug hypersensitivity [Unknown]
